FAERS Safety Report 12343832 (Version 4)
Quarter: 2016Q3

REPORT INFORMATION
  Report Type: Spontaneous
  Country: GB (occurrence: GB)
  Receive Date: 20160507
  Receipt Date: 20160804
  Transmission Date: 20161109
  Serious: Yes (Other)
  Sender: FDA-Public Use
  Company Number: GB-AMGEN-GBRSP2016057806

PATIENT
  Age: 42 Year
  Sex: Female

DRUGS (4)
  1. LEFLUNOMIDE. [Concomitant]
     Active Substance: LEFLUNOMIDE
     Dosage: 20 MG, DAILY
  2. METHOTREXATE (METHOTREXATE SODIUM) [Suspect]
     Active Substance: METHOTREXATE SODIUM
     Indication: PSORIASIS
  3. ENBREL [Suspect]
     Active Substance: ETANERCEPT
     Indication: PSORIATIC ARTHROPATHY
     Dosage: 50 MG, WEEKLY
     Route: 065
     Dates: start: 20151029
  4. METHOTREXATE (METHOTREXATE SODIUM) [Suspect]
     Active Substance: METHOTREXATE SODIUM
     Indication: PSORIATIC ARTHROPATHY
     Dosage: 2 MG, (DAILY)
     Route: 048

REACTIONS (10)
  - Intervertebral disc protrusion [Unknown]
  - Headache [Unknown]
  - Drug effect incomplete [Unknown]
  - Photosensitivity reaction [Unknown]
  - Pain [Unknown]
  - Fall [Unknown]
  - Drug ineffective [Unknown]
  - Muscle spasms [Unknown]
  - Back injury [Unknown]
  - Burns first degree [Unknown]

NARRATIVE: CASE EVENT DATE: 20151231
